FAERS Safety Report 9964312 (Version 2)
Quarter: 2014Q1

REPORT INFORMATION
  Report Type: Spontaneous
  Country: US (occurrence: US)
  Receive Date: 20140305
  Receipt Date: 20140328
  Transmission Date: 20141002
  Serious: Yes (Death, Hospitalization)
  Sender: FDA-Public Use
  Company Number: US-GLAXOSMITHKLINE-A1062342A

PATIENT
  Age: 80 Year
  Sex: Male

DRUGS (11)
  1. ADVAIR [Suspect]
     Indication: CHRONIC OBSTRUCTIVE PULMONARY DISEASE
     Dosage: 1PUFF TWICE PER DAY
     Route: 055
     Dates: start: 2003, end: 20131201
  2. COMBIVENT RESPIMAT [Concomitant]
  3. LISINOPRIL [Concomitant]
  4. CALCITRIOL [Concomitant]
  5. ALLOPURINOL [Concomitant]
  6. FUROSEMIDE [Concomitant]
  7. AMIODARONE [Concomitant]
  8. DILTIAZEM [Concomitant]
  9. PANTOPRAZOLE [Concomitant]
  10. HYDRALAZINE [Concomitant]
  11. PREDNISONE [Concomitant]

REACTIONS (2)
  - Death [Fatal]
  - Investigation [Unknown]
